FAERS Safety Report 7250504-1 (Version None)
Quarter: 2011Q1

REPORT INFORMATION
  Report Type: 
  Country: None (occurrence: None)
  Receive Date: 20110128
  Receipt Date: 20110117
  Transmission Date: 20110831
  Serious: Yes (Hospitalization)
  Sender: FDA-Public Use
  Company Number: PHHY2010US85868

PATIENT
  Sex: Female
  Weight: 92.5 kg

DRUGS (4)
  1. FOLIC ACID [Concomitant]
     Dosage: 1 MG, DAILY
     Route: 048
  2. ZITHROMAX [Concomitant]
     Dosage: 500 MG,
     Route: 048
     Dates: start: 20101103
  3. ZITHROMAX [Concomitant]
     Dosage: 250 MG, UNK
     Route: 048
     Dates: end: 20101108
  4. EXJADE [Suspect]
     Indication: IRON OVERLOAD
     Dosage: 1750 MG DAILY
     Route: 048
     Dates: start: 20101014, end: 20101026

REACTIONS (3)
  - HEADACHE [None]
  - SINUSITIS [None]
  - MIGRAINE [None]
